FAERS Safety Report 5830676-3 (Version None)
Quarter: 2008Q3

REPORT INFORMATION
  Report Type: 
  Country: None (occurrence: None)
  Receive Date: 20080801
  Receipt Date: 20071001
  Transmission Date: 20090109
  Serious: No
  Sender: FDA-Public Use
  Company Number: US-BRISTOL-MYERS SQUIBB COMPANY-13925318

PATIENT
  Age: 73 Year
  Sex: Female
  Weight: 69 kg

DRUGS (7)
  1. COUMADIN [Suspect]
     Indication: HEART RATE IRREGULAR
     Route: 048
  2. NOVOLOG [Concomitant]
  3. SPIRONOLACTONE + BUTIZIDE [Concomitant]
  4. LASIX [Concomitant]
  5. SOTALOL HCL [Concomitant]
  6. TEMAZEPAM [Concomitant]
  7. POTASSIUM CHLORIDE [Concomitant]

REACTIONS (1)
  - FEELING OF BODY TEMPERATURE CHANGE [None]
